FAERS Safety Report 9027050 (Version 2)
Quarter: 2013Q4

REPORT INFORMATION
  Report Type: Spontaneous
  Country: GB (occurrence: GB)
  Receive Date: 20130123
  Receipt Date: 20131009
  Transmission Date: 20140711
  Serious: Yes (Hospitalization)
  Sender: FDA-Public Use
  Company Number: GB-ELI_LILLY_AND_COMPANY-GB201301004140

PATIENT
  Age: 52 Year
  Sex: Female
  Weight: 86 kg

DRUGS (8)
  1. CYMBALTA [Suspect]
     Indication: FIBROMYALGIA
     Dosage: 40 MG, BID
     Route: 065
     Dates: start: 20120815, end: 20130208
  2. AMLODIPINE [Concomitant]
     Dosage: UNK UNK, UNKNOWN
     Route: 065
     Dates: start: 20120815, end: 20121115
  3. BENDROFLUMETHIAZIDE [Concomitant]
     Dosage: UNK UNK, UNKNOWN
     Route: 065
     Dates: start: 20120815, end: 20121115
  4. CLONIDINE [Concomitant]
     Dosage: UNK UNK, UNKNOWN
     Route: 065
     Dates: start: 20120920
  5. GABAPENTIN [Concomitant]
     Dosage: UNK UNK, UNKNOWN
     Route: 065
     Dates: start: 20120815, end: 20121010
  6. LOSARTAN [Concomitant]
     Dosage: UNK UNK, UNKNOWN
     Route: 065
     Dates: start: 20121106, end: 20130101
  7. OMEPRAZOLE [Concomitant]
     Dosage: UNK UNK, UNKNOWN
     Route: 065
     Dates: start: 20120815, end: 20121010
  8. RAMIPRIL [Concomitant]
     Dosage: UNK UNK, UNKNOWN
     Route: 065
     Dates: start: 20120815, end: 20121115

REACTIONS (1)
  - Electrocardiogram QT prolonged [Recovering/Resolving]
